FAERS Safety Report 18306641 (Version 1)
Quarter: 2020Q3

REPORT INFORMATION
  Report Type: Spontaneous
  Country: US (occurrence: US)
  Receive Date: 20200923
  Receipt Date: 20200923
  Transmission Date: 20201103
  Serious: Yes (Hospitalization)
  Sender: FDA-Public Use
  Company Number: None

PATIENT
  Age: 76 Year
  Sex: Male

DRUGS (1)
  1. EDOXABAN( EDOXABAN 60MG TAB) [Suspect]
     Active Substance: EDOXABAN
     Indication: ATRIAL FIBRILLATION
     Route: 048
     Dates: start: 20190422

REACTIONS (1)
  - Haemorrhage [None]

NARRATIVE: CASE EVENT DATE: 20190422
